FAERS Safety Report 5386868-3 (Version None)
Quarter: 2007Q3

REPORT INFORMATION
  Report Type: 
  Country: None (occurrence: None)
  Receive Date: 20070713
  Receipt Date: 20070702
  Transmission Date: 20080115
  Serious: Yes (Other)
  Sender: FDA-Public Use
  Company Number: JP-PFIZER INC-2007042332

PATIENT
  Sex: Male
  Weight: 73.2 kg

DRUGS (15)
  1. ZITHROMAC [Suspect]
     Indication: PHARYNGITIS
     Route: 048
     Dates: start: 20070515, end: 20070517
  2. ZITHROMAC [Suspect]
  3. PONTAL [Suspect]
     Indication: PYREXIA
     Route: 048
     Dates: start: 20070515, end: 20070523
  4. PONTAL [Suspect]
     Indication: PHARYNGITIS
  5. MEDICON [Concomitant]
     Route: 048
     Dates: start: 20070511, end: 20070523
  6. MUCODYNE [Concomitant]
     Route: 048
     Dates: start: 20070511, end: 20070523
  7. ALL OTHER THERAPEUTIC PRODUCTS [Concomitant]
     Route: 048
     Dates: start: 20070511, end: 20070513
  8. MEQUITAL [Concomitant]
     Route: 048
     Dates: start: 20070511, end: 20070520
  9. BROCIN [Concomitant]
     Route: 048
     Dates: start: 20070515, end: 20070517
  10. SENEGA [Concomitant]
     Route: 048
     Dates: start: 20070515, end: 20070517
  11. AMLODIN [Concomitant]
     Route: 048
     Dates: start: 20070216
  12. TANATRIL ^TANABE^ [Concomitant]
     Route: 048
     Dates: start: 20070216
  13. VALSARTAN [Concomitant]
     Route: 048
     Dates: start: 20070306
  14. BEZATOL - SLOW RELEASE [Concomitant]
     Route: 048
     Dates: start: 20070306
  15. DIART [Concomitant]
     Route: 048
     Dates: start: 20070427

REACTIONS (3)
  - GASTRITIS [None]
  - OCULOMUCOCUTANEOUS SYNDROME [None]
  - STOMATITIS [None]
